FAERS Safety Report 15746495 (Version 1)
Quarter: 2018Q4

REPORT INFORMATION
  Report Type: Spontaneous
  Country: SE (occurrence: SE)
  Receive Date: 20181220
  Receipt Date: 20181220
  Transmission Date: 20190205
  Serious: Yes (Hospitalization)
  Sender: FDA-Public Use
  Company Number: SE-TEVA-2018-SE-988486

PATIENT
  Age: 71 Year
  Sex: Female

DRUGS (7)
  1. BRILIQUE 90 MG FILMDRAGERAD TABLETT [Suspect]
     Active Substance: TICAGRELOR
     Route: 048
  2. TROMBYL 75 MG TABLETT [Suspect]
     Active Substance: ASPIRIN
     Route: 065
  3. DOXYFERM [Concomitant]
     Active Substance: DOXYCYCLINE
  4. ATACAND PLUS [Suspect]
     Active Substance: CANDESARTAN CILEXETIL\HYDROCHLOROTHIAZIDE
     Route: 048
  5. SIMVASTATIN. [Concomitant]
     Active Substance: SIMVASTATIN
  6. ATENOLOL. [Suspect]
     Active Substance: ATENOLOL
     Dosage: UNK
     Route: 065
  7. FELODIPINE. [Concomitant]
     Active Substance: FELODIPINE

REACTIONS (2)
  - Hypotension [Unknown]
  - Epistaxis [Recovered/Resolved]

NARRATIVE: CASE EVENT DATE: 20131110
